FAERS Safety Report 6642320-6 (Version None)
Quarter: 2010Q1

REPORT INFORMATION
  Report Type: 
  Country: None (occurrence: None)
  Receive Date: 20100319
  Receipt Date: 20100308
  Transmission Date: 20100710
  Serious: Yes (Life-Threatening)
  Sender: FDA-Public Use
  Company Number: GR-ROCHE-677606

PATIENT
  Sex: Female

DRUGS (6)
  1. TRASTUZUMAB [Suspect]
     Indication: BREAST CANCER
     Dosage: LAST DOSE ON 18 DECEMBER 2009 (CYCLE 11), THERAPY DISCONTINUED.
     Route: 042
     Dates: start: 20090507, end: 20091230
  2. IXABEPILONE [Suspect]
     Indication: DRUG USE FOR UNKNOWN INDICATION
     Route: 065
  3. DOCETAXEL [Suspect]
     Indication: DRUG USE FOR UNKNOWN INDICATION
     Route: 065
  4. ZOLEDRONIC ACID [Concomitant]
     Dates: start: 20090605
  5. LEVOTHYROXIN-SODIUM [Concomitant]
  6. CALCIUM CARBONATE [Concomitant]

REACTIONS (3)
  - CIRCULATORY COLLAPSE [None]
  - PERICARDIAL EFFUSION [None]
  - PULMONARY HYPERTENSION [None]
